FAERS Safety Report 8475800-1 (Version None)
Quarter: 2012Q2

REPORT INFORMATION
  Report Type: 
  Country: None (occurrence: None)
  Receive Date: 20120628
  Receipt Date: 20120622
  Transmission Date: 20120825
  Serious: Yes (Other)
  Sender: FDA-Public Use
  Company Number: US-BAYER-2012-062794

PATIENT
  Sex: Female

DRUGS (1)
  1. MIRENA [Suspect]
     Indication: CONTRACEPTION
     Dosage: 20 MCG/24HR, CONT
     Route: 015
     Dates: start: 20080101

REACTIONS (8)
  - IRRITABILITY [None]
  - PREMATURE MENOPAUSE [None]
  - AMENORRHOEA [None]
  - ANXIETY [None]
  - INSOMNIA [None]
  - WEIGHT INCREASED [None]
  - HYPERHIDROSIS [None]
  - DIZZINESS [None]
